FAERS Safety Report 6643828-X (Version None)
Quarter: 2010Q1

REPORT INFORMATION
  Report Type: 
  Country: None (occurrence: None)
  Receive Date: 20100322
  Receipt Date: 20100312
  Transmission Date: 20100710
  Serious: Yes (Other)
  Sender: FDA-Public Use
  Company Number: JP-JNJFOC-20100304949

PATIENT

DRUGS (1)
  1. NIZORAL [Suspect]
     Indication: ACCIDENTAL EXPOSURE
     Route: 061

REACTIONS (1)
  - ACCIDENTAL EXPOSURE [None]
